FAERS Safety Report 11640279 (Version 2)
Quarter: 2016Q1

REPORT INFORMATION
  Report Type: Spontaneous
  Country: GB (occurrence: GB)
  Receive Date: 20151019
  Receipt Date: 20160105
  Transmission Date: 20160525
  Serious: Yes (Other)
  Sender: FDA-Public Use
  Company Number: GB-TEVA-600423ACC

PATIENT
  Age: 53 Year
  Sex: Female
  Weight: 118.8 kg

DRUGS (12)
  1. CITALOPRAM [Concomitant]
     Active Substance: CITALOPRAM HYDROBROMIDE
     Dosage: 40 MILLIGRAM DAILY;
     Route: 048
     Dates: start: 20150414
  2. DIPROBASE [Concomitant]
     Active Substance: CHLOROCRESOL
     Dosage: APPLY AS NEEDED
     Route: 061
     Dates: start: 20141205
  3. VESICARE [Concomitant]
     Active Substance: SOLIFENACIN SUCCINATE
     Dosage: 10 MILLIGRAM DAILY;
     Route: 048
     Dates: start: 20141202
  4. GABAPENTIN. [Concomitant]
     Active Substance: GABAPENTIN
     Dosage: 2700 MILLIGRAM DAILY; 08:00, 14:00 AND 22:00
     Route: 048
     Dates: start: 20141202
  5. NAPROXEN. [Concomitant]
     Active Substance: NAPROXEN
     Dosage: 2 DOSAGE FORMS DAILY;
     Dates: start: 20141202
  6. CIPROFLOXACIN. [Suspect]
     Active Substance: CIPROFLOXACIN
     Indication: URINARY TRACT INFECTION
     Dates: start: 20150928
  7. NAPROXEN. [Concomitant]
     Active Substance: NAPROXEN
     Dosage: 500 MILLIGRAM DAILY; AT 08:00
     Route: 048
     Dates: start: 20141202
  8. PARACETAMOL [Concomitant]
     Active Substance: ACETAMINOPHEN
     Dosage: 4 GRAM DAILY; TAKE TWO 4 TIMES/DAY AS REQUIRED
     Route: 048
     Dates: start: 20141202
  9. TIZANIDINE HYDROCHLORIDE. [Interacting]
     Active Substance: TIZANIDINE HYDROCHLORIDE
     Dosage: 6 MILLIGRAM DAILY;
     Route: 048
     Dates: start: 20141202
  10. TRAMADOL. [Concomitant]
     Active Substance: TRAMADOL
     Dosage: 400 MILLIGRAM DAILY; AT 08:00 AND 17:00.
     Route: 048
     Dates: start: 20141202
  11. OMEPRAZOLE. [Concomitant]
     Active Substance: OMEPRAZOLE
     Dosage: 20 MILLIGRAM DAILY; AT 08:00
     Route: 048
     Dates: start: 20141202
  12. DOUBLEBASE [Concomitant]
     Active Substance: ISOPROPYL MYRISTATE\PARAFFIN
     Dosage: USE AS NEEDED
     Dates: start: 20150810, end: 20150811

REACTIONS (5)
  - Hepatitis [Recovered/Resolved]
  - Liver function test abnormal [Recovered/Resolved]
  - Chest pain [Recovered/Resolved]
  - Abdominal tenderness [Recovered/Resolved]
  - Drug interaction [Unknown]

NARRATIVE: CASE EVENT DATE: 20150918
